FAERS Safety Report 20436498 (Version 1)
Quarter: 2022Q1

REPORT INFORMATION
  Report Type: Spontaneous
  Country: US (occurrence: US)
  Receive Date: 20220207
  Receipt Date: 20220207
  Transmission Date: 20220423
  Serious: No
  Sender: FDA-Public Use
  Company Number: US-Vifor (International) Inc.-VIT-2022-00189

PATIENT
  Sex: Male

DRUGS (14)
  1. VELTASSA [Suspect]
     Active Substance: PATIROMER
     Indication: Blood potassium increased
     Dates: start: 2021
  2. VELTASSA [Suspect]
     Active Substance: PATIROMER
     Dates: start: 2021
  3. VELTASSA [Suspect]
     Active Substance: PATIROMER
  4. SERTRALINE [Concomitant]
     Active Substance: SERTRALINE HYDROCHLORIDE
  5. AMLODIPINE [Concomitant]
     Active Substance: AMLODIPINE BESYLATE
  6. METFORMIN [Concomitant]
     Active Substance: METFORMIN HYDROCHLORIDE
  7. CEREFOLIN [Concomitant]
     Active Substance: CYANOCOBALAMIN CO-57\LEVOMEFOLATE CALCIUM\PYRIDOXINE HYDROCHLORIDE\RIBOFLAVIN
  8. ASPIRIN [Concomitant]
     Active Substance: ASPIRIN
  9. FARXIGA [Concomitant]
     Active Substance: DAPAGLIFLOZIN PROPANEDIOL
  10. NOVOLOG [Concomitant]
     Active Substance: INSULIN ASPART
  11. TRESIBA [Concomitant]
     Active Substance: INSULIN DEGLUDEC
  12. NALTREXONE [Concomitant]
     Active Substance: NALTREXONE
  13. ALTACE [Concomitant]
     Active Substance: RAMIPRIL
  14. VITAMINS [Concomitant]
     Active Substance: VITAMINS

REACTIONS (4)
  - Blood potassium increased [Unknown]
  - Constipation [Recovered/Resolved]
  - Off label use [Unknown]
  - Product dose omission issue [Unknown]

NARRATIVE: CASE EVENT DATE: 20210101
